FAERS Safety Report 14759190 (Version 3)
Quarter: 2018Q2

REPORT INFORMATION
  Report Type: Spontaneous
  Country: CH (occurrence: CH)
  Receive Date: 20180413
  Receipt Date: 20180424
  Transmission Date: 20180711
  Serious: Yes (Hospitalization, Other)
  Sender: FDA-Public Use
  Company Number: CH-PFIZER INC-2018147342

PATIENT
  Age: 59 Year
  Sex: Male
  Weight: 95 kg

DRUGS (17)
  1. ZOLOFT [Suspect]
     Active Substance: SERTRALINE HYDROCHLORIDE
     Dosage: 50 MG, 1X/DAY
  2. NEBILET [Concomitant]
     Active Substance: NEBIVOLOL
     Dosage: 7.5 MG, 1X/DAY (5MG 1.5-0-0-0)
  3. ATORVASTATIN [Concomitant]
     Active Substance: ATORVASTATIN
     Dosage: 40 MG, 1X/DAY (0-0-1-0)
  4. ASS CARDIO [Interacting]
     Active Substance: ASPIRIN
     Dosage: 100 MG, 1X/DAY
     Dates: end: 20180323
  5. PANTOZOL [Interacting]
     Active Substance: PANTOPRAZOLE SODIUM
     Dosage: 40MG 1X/DAY
  6. TOREM /01036501/ [Concomitant]
     Active Substance: TORSEMIDE
     Dosage: 20 MG, 1X/DAY (10MG 2-0-0-0)
  7. ADALAT [Concomitant]
     Active Substance: NIFEDIPINE
     Dosage: 30 MG, 1X/DAY (0-0-1-0)
     Dates: end: 20180323
  8. TRIATEC /00885601/ [Concomitant]
     Active Substance: RAMIPRIL
     Dosage: 10 MG, 1X/DAY (1-0-0-0)
  9. PHYSIOTENS [Concomitant]
     Active Substance: MOXONIDINE
     Dosage: 0.4 MG, 1X/DAY (0.2MG 2-0-0-0)
  10. PANTOZOL [Interacting]
     Active Substance: PANTOPRAZOLE SODIUM
     Dosage: 20 MG, 1X/DAY
  11. MARCOUMAR [Interacting]
     Active Substance: PHENPROCOUMON
     Dosage: 1 DF, ACCORDING TO INR
     Dates: end: 20180323
  12. MARCOUMAR [Interacting]
     Active Substance: PHENPROCOUMON
     Dosage: 1 DF, ACCORDING TO INR
     Dates: start: 20180327
  13. CARDURA [Concomitant]
     Active Substance: DOXAZOSIN MESYLATE
     Dosage: 4 MG, 2X/DAY (1-0-1-0)
  14. INSPRA [Concomitant]
     Active Substance: EPLERENONE
     Dosage: 50 MG, 1X/DAY (1-0-0-0)
  15. MONTELUKAST SODIUM. [Concomitant]
     Active Substance: MONTELUKAST SODIUM
     Dosage: UNK
  16. TOREM /01036501/ [Concomitant]
     Active Substance: TORSEMIDE
     Dosage: 20 MG, 2X/DAY (10MG 2-0-2-0)
  17. ADALAT [Concomitant]
     Active Substance: NIFEDIPINE
     Dosage: 60 MG, 1X/DAY (1-0-0-0)
     Dates: end: 20180323

REACTIONS (6)
  - Lower gastrointestinal haemorrhage [Recovered/Resolved]
  - Drug interaction [Recovered/Resolved]
  - Rectal polyp [Recovered/Resolved]
  - Vertigo [Unknown]
  - Asthenia [Unknown]
  - Haemoglobin decreased [Recovered/Resolved]

NARRATIVE: CASE EVENT DATE: 2017
